FAERS Safety Report 10188980 (Version 1)
Quarter: 2014Q2

REPORT INFORMATION
  Report Type: Report from Study
  Country: US (occurrence: US)
  Receive Date: 20140522
  Receipt Date: 20140522
  Transmission Date: 20141212
  Serious: Yes (Hospitalization)
  Sender: FDA-Public Use
  Company Number: PHEH2014US010234

PATIENT
  Age: 67 Year
  Sex: Male

DRUGS (10)
  1. BASILIXIMAB [Suspect]
     Indication: RENAL TRANSPLANT
     Dosage: 20 MG, UNK
     Route: 042
     Dates: start: 20130917
  2. BASILIXIMAB [Suspect]
     Dosage: 20 MG, UNK
     Route: 042
     Dates: start: 20130920
  3. MYCOPHENOLATE MOFETIL [Suspect]
     Indication: RENAL TRANSPLANT
     Dosage: 1000 MG, BID
     Route: 048
     Dates: start: 20130917, end: 20140429
  4. MYCOPHENOLATE MOFETIL [Suspect]
     Dosage: 500 MG, QD
     Route: 048
     Dates: start: 20140404
  5. TAMSULOSIN [Concomitant]
     Dosage: UNK UKN, UNK
  6. ASA [Concomitant]
     Dosage: UNK UKN, UNK
  7. COREG [Concomitant]
     Dosage: UNK UKN, UNK
  8. PROCARDIA [Concomitant]
     Dosage: UNK UKN, UNK
  9. PRAVASTATIN [Concomitant]
     Dosage: UNK UKN, UNK
  10. PRILOSEC [Concomitant]
     Dosage: UNK UKN, UNK

REACTIONS (13)
  - Chondrocalcinosis pyrophosphate [Unknown]
  - Joint dislocation [Unknown]
  - Exostosis [Unknown]
  - Peripheral swelling [Unknown]
  - Cellulitis [Recovered/Resolved]
  - Cellulitis staphylococcal [Unknown]
  - Exfoliative rash [Unknown]
  - Pseudomonas infection [Unknown]
  - Pain [Unknown]
  - Rash [Unknown]
  - Leukopenia [Unknown]
  - Cytomegalovirus infection [Unknown]
  - Anaemia [Unknown]
